FAERS Safety Report 22098897 (Version 1)
Quarter: 2023Q1

REPORT INFORMATION
  Report Type: Report from Study
  Country: US (occurrence: US)
  Receive Date: 20230315
  Receipt Date: 20230315
  Transmission Date: 20230418
  Serious: Yes (Other)
  Sender: FDA-Public Use
  Company Number: US-MYLANLABS-PV202200035246

PATIENT
  Age: 59 Year
  Sex: Female

DRUGS (3)
  1. DILANTIN [Suspect]
     Active Substance: PHENYTOIN
     Indication: Seizure
     Dosage: UNK
     Route: 065
  2. DILANTIN [Suspect]
     Active Substance: PHENYTOIN
     Dosage: 2 CAPSULES EVERY MORNING AND 3 CAPSULES EVERY EVENING
     Route: 048
     Dates: start: 2008, end: 202201
  3. DILANTIN [Suspect]
     Active Substance: PHENYTOIN
     Dosage: 200 MG, 2X/DAY
     Route: 048

REACTIONS (5)
  - Loss of consciousness [Unknown]
  - Head injury [Recovered/Resolved]
  - Fall [Unknown]
  - Intentional product use issue [Unknown]
  - Off label use [Unknown]
